FAERS Safety Report 15317013 (Version 3)
Quarter: 2018Q3

REPORT INFORMATION
  Report Type: Report from Study
  Country: None (occurrence: SE)
  Receive Date: 20180824
  Receipt Date: 20180907
  Transmission Date: 20181010
  Serious: Yes (Hospitalization)
  Sender: FDA-Public Use
  Company Number: SE-ABBVIE-18P-150-2455623-00

PATIENT
  Age: 79 Year
  Sex: Male
  Weight: 96.5 kg

DRUGS (21)
  1. VENETOCLAX. [Suspect]
     Active Substance: VENETOCLAX
     Indication: ACUTE MYELOID LEUKAEMIA
     Route: 048
     Dates: start: 20180613, end: 20180613
  2. CITODON [Concomitant]
     Active Substance: ACETAMINOPHEN\CODEINE PHOSPHATE
     Indication: ARTHRALGIA
     Dosage: 500 MG PARACETAMOL + 30 MG KODEIN
     Route: 048
  3. PREDNISOLON [Concomitant]
     Active Substance: PREDNISOLONE
     Route: 048
  4. PREDNISOLON [Concomitant]
     Active Substance: PREDNISOLONE
     Route: 048
     Dates: start: 20180626
  5. IMOVANE [Concomitant]
     Active Substance: ZOPICLONE
     Indication: INSOMNIA
     Route: 048
     Dates: start: 20180612
  6. ONDANSETRON [Concomitant]
     Active Substance: ONDANSETRON
     Indication: PROPHYLAXIS OF NAUSEA AND VOMITING
     Route: 048
  7. SIMVASTATIN. [Concomitant]
     Active Substance: SIMVASTATIN
     Indication: LIPIDS INCREASED
     Route: 048
     Dates: start: 20180619
  8. PREDNISOLON [Concomitant]
     Active Substance: PREDNISOLONE
     Route: 048
     Dates: end: 20180625
  9. PREDNISOLON [Concomitant]
     Active Substance: PREDNISOLONE
     Route: 048
     Dates: start: 20180619, end: 20180619
  10. PREDNISOLON [Concomitant]
     Active Substance: PREDNISOLONE
     Route: 048
     Dates: start: 20180620
  11. OXYCODONE [Concomitant]
     Active Substance: OXYCODONE
     Indication: ARTHRALGIA
     Route: 048
     Dates: start: 20180619
  12. FOLSYRA [Concomitant]
     Indication: PRODUCT USED FOR UNKNOWN INDICATION
     Route: 048
  13. BEHEPAN [Concomitant]
     Active Substance: HYDROXOCOBALAMIN
     Indication: PRODUCT USED FOR UNKNOWN INDICATION
     Route: 048
  14. OXYNORM [Concomitant]
     Active Substance: OXYCODONE HYDROCHLORIDE
     Indication: ARTHRALGIA
     Route: 048
     Dates: start: 20180615
  15. MOVICOL [Concomitant]
     Active Substance: POLYETHYLENE GLYCOL 3350\POTASSIUM CHLORIDE\SODIUM BICARBONATE\SODIUM CHLORIDE
     Indication: CONSTIPATION
     Dosage: 1 DOSING BAG
     Route: 048
     Dates: start: 20180718
  16. VENETOCLAX. [Suspect]
     Active Substance: VENETOCLAX
     Route: 048
     Dates: start: 20180614, end: 20180614
  17. KALCIPOS?D FORTE [Concomitant]
     Active Substance: CALCIUM CARBONATE\CHOLECALCIFEROL
     Indication: OSTEOPOROSIS PROPHYLAXIS
     Dosage: 500 MG CALCIUM CARBONATE + 800 IE COLECALCIFEROL
     Route: 048
  18. PREDNISOLON [Concomitant]
     Active Substance: PREDNISOLONE
     Indication: RHEUMATOID ARTHRITIS
     Route: 048
     Dates: start: 20180615, end: 20180618
  19. VENETOCLAX. [Suspect]
     Active Substance: VENETOCLAX
     Route: 048
     Dates: start: 20180615
  20. AZACITIDINE. [Suspect]
     Active Substance: AZACITIDINE
     Indication: ACUTE MYELOID LEUKAEMIA
     Dosage: DAYS 1?7 OF EACH 28?DAY CYCLE
     Route: 058
     Dates: start: 20180613
  21. ACLASTA [Concomitant]
     Active Substance: ZOLEDRONIC ACID
     Indication: OSTEOPOROSIS

REACTIONS (1)
  - C-reactive protein increased [Recovered/Resolved]

NARRATIVE: CASE EVENT DATE: 20180815
